FAERS Safety Report 14128202 (Version 1)
Quarter: 2017Q4

REPORT INFORMATION
  Report Type: Spontaneous
  Country: US (occurrence: US)
  Receive Date: 20171026
  Receipt Date: 20171026
  Transmission Date: 20180321
  Serious: Yes (Hospitalization)
  Sender: FDA-Public Use
  Company Number: US-STRIDES ARCOLAB LIMITED-2017SP013575

PATIENT

DRUGS (4)
  1. DIGOXIN. [Interacting]
     Active Substance: DIGOXIN
     Indication: ATRIAL FIBRILLATION
     Dosage: UNK, UNKNOWN
     Route: 065
  2. METFORMIN [Interacting]
     Active Substance: METFORMIN HYDROCHLORIDE
     Indication: DIABETES MELLITUS
     Dosage: 1000 MG, QD
     Route: 065
  3. GLIPIZIDE XL [Interacting]
     Active Substance: GLIPIZIDE
     Indication: DIABETES MELLITUS
     Dosage: 10 MG, BID
     Route: 065
  4. RANITIDINE. [Suspect]
     Active Substance: RANITIDINE
     Indication: PRODUCT USED FOR UNKNOWN INDICATION
     Dosage: UNK, UNKNOWN
     Route: 065

REACTIONS (10)
  - Dysphagia [Unknown]
  - Incoherent [Recovered/Resolved]
  - Somnolence [Unknown]
  - Confusional state [Recovered/Resolved]
  - Drug interaction [Unknown]
  - Fall [Unknown]
  - Dysarthria [Unknown]
  - Diplopia [Unknown]
  - Mental status changes [Recovered/Resolved]
  - Hypoglycaemia [Unknown]
